FAERS Safety Report 4586353-2 (Version None)
Quarter: 2005Q1

REPORT INFORMATION
  Report Type: 
  Country: None (occurrence: None)
  Receive Date: 20050125
  Receipt Date: 20041109
  Transmission Date: 20050727
  Serious: No
  Sender: FDA-Public Use
  Company Number: USA040876683

PATIENT
  Age: 76 Year
  Sex: Female

DRUGS (4)
  1. FORTEO [Suspect]
     Indication: OSTEOPOROSIS
     Dates: start: 20040701
  2. VITAMIN B-12 [Concomitant]
  3. CALCIUM WITH VITAMIN D [Concomitant]
  4. FOSAMAX [Concomitant]

REACTIONS (5)
  - BREAST PAIN [None]
  - BREAST SWELLING [None]
  - ERYTHEMA [None]
  - INJECTION SITE HAEMORRHAGE [None]
  - PRURITUS [None]
